FAERS Safety Report 12771649 (Version 1)
Quarter: 2016Q3

REPORT INFORMATION
  Report Type: Spontaneous
  Country: US (occurrence: US)
  Receive Date: 20160922
  Receipt Date: 20160922
  Transmission Date: 20161109
  Serious: No
  Sender: FDA-Public Use
  Company Number: US-AMGEN-USASP2016123962

PATIENT

DRUGS (37)
  1. TAXOTERE [Suspect]
     Active Substance: DOCETAXEL
     Indication: INVASIVE LOBULAR BREAST CARCINOMA
  2. TAXOTERE [Suspect]
     Active Substance: DOCETAXEL
     Indication: INVASIVE LOBULAR BREAST CARCINOMA
  3. ARIMIDEX [Concomitant]
     Active Substance: ANASTROZOLE
     Indication: INTRADUCTAL PROLIFERATIVE BREAST LESION
  4. AROMASIN [Concomitant]
     Active Substance: EXEMESTANE
     Indication: INTRADUCTAL PROLIFERATIVE BREAST LESION
  5. FEMARA [Concomitant]
     Active Substance: LETROZOLE
     Indication: PROGESTERONE RECEPTOR ASSAY POSITIVE
  6. TAXOTERE [Suspect]
     Active Substance: DOCETAXEL
     Indication: OESTROGEN RECEPTOR ASSAY POSITIVE
  7. ARIMIDEX [Concomitant]
     Active Substance: ANASTROZOLE
     Indication: INVASIVE DUCTAL BREAST CARCINOMA
     Dosage: UNK
     Dates: start: 20100901
  8. AROMASIN [Concomitant]
     Active Substance: EXEMESTANE
     Indication: INVASIVE DUCTAL BREAST CARCINOMA
     Dosage: UNK
     Dates: start: 20100901
  9. AROMASIN [Concomitant]
     Active Substance: EXEMESTANE
     Indication: INVASIVE LOBULAR BREAST CARCINOMA
  10. FEMARA [Concomitant]
     Active Substance: LETROZOLE
     Indication: INTRADUCTAL PROLIFERATIVE BREAST LESION
  11. FEMARA [Concomitant]
     Active Substance: LETROZOLE
     Indication: OESTROGEN RECEPTOR ASSAY POSITIVE
  12. ARIMIDEX [Concomitant]
     Active Substance: ANASTROZOLE
     Indication: INVASIVE LOBULAR BREAST CARCINOMA
  13. ARIMIDEX [Concomitant]
     Active Substance: ANASTROZOLE
     Indication: HUMAN EPIDERMAL GROWTH FACTOR RECEPTOR NEGATIVE
  14. AROMASIN [Concomitant]
     Active Substance: EXEMESTANE
     Indication: PROGESTERONE RECEPTOR ASSAY POSITIVE
  15. FEMARA [Concomitant]
     Active Substance: LETROZOLE
     Indication: INVASIVE LOBULAR BREAST CARCINOMA
  16. FEMARA [Concomitant]
     Active Substance: LETROZOLE
     Indication: HUMAN EPIDERMAL GROWTH FACTOR RECEPTOR NEGATIVE
  17. CYTOXAN [Suspect]
     Active Substance: CYCLOPHOSPHAMIDE
     Indication: INVASIVE DUCTAL BREAST CARCINOMA
     Dosage: UNK
     Route: 065
     Dates: start: 20100503
  18. CYTOXAN [Suspect]
     Active Substance: CYCLOPHOSPHAMIDE
     Indication: INVASIVE LOBULAR BREAST CARCINOMA
  19. TAXOTERE [Suspect]
     Active Substance: DOCETAXEL
     Indication: INTRADUCTAL PROLIFERATIVE BREAST LESION
  20. ARIMIDEX [Concomitant]
     Active Substance: ANASTROZOLE
     Indication: INVASIVE LOBULAR BREAST CARCINOMA
  21. NEULASTA [Suspect]
     Active Substance: PEGFILGRASTIM
     Indication: PRODUCT USED FOR UNKNOWN INDICATION
     Dosage: UNK UNK, UNK
     Route: 065
  22. NEUPOGEN [Suspect]
     Active Substance: FILGRASTIM
     Indication: PRODUCT USED FOR UNKNOWN INDICATION
     Dosage: UNK
     Route: 065
  23. CYTOXAN [Suspect]
     Active Substance: CYCLOPHOSPHAMIDE
     Indication: HUMAN EPIDERMAL GROWTH FACTOR RECEPTOR NEGATIVE
  24. TAXOTERE [Suspect]
     Active Substance: DOCETAXEL
     Indication: PROGESTERONE RECEPTOR ASSAY POSITIVE
  25. CYTOXAN [Suspect]
     Active Substance: CYCLOPHOSPHAMIDE
     Indication: INTRADUCTAL PROLIFERATIVE BREAST LESION
  26. CYTOXAN [Suspect]
     Active Substance: CYCLOPHOSPHAMIDE
     Indication: INVASIVE LOBULAR BREAST CARCINOMA
  27. TAXOTERE [Suspect]
     Active Substance: DOCETAXEL
     Indication: HUMAN EPIDERMAL GROWTH FACTOR RECEPTOR NEGATIVE
  28. ARIMIDEX [Concomitant]
     Active Substance: ANASTROZOLE
     Indication: PROGESTERONE RECEPTOR ASSAY POSITIVE
  29. AROMASIN [Concomitant]
     Active Substance: EXEMESTANE
     Indication: OESTROGEN RECEPTOR ASSAY POSITIVE
  30. AROMASIN [Concomitant]
     Active Substance: EXEMESTANE
     Indication: HUMAN EPIDERMAL GROWTH FACTOR RECEPTOR NEGATIVE
  31. CYTOXAN [Suspect]
     Active Substance: CYCLOPHOSPHAMIDE
     Indication: PROGESTERONE RECEPTOR ASSAY POSITIVE
  32. AROMASIN [Concomitant]
     Active Substance: EXEMESTANE
     Indication: INVASIVE LOBULAR BREAST CARCINOMA
  33. CYTOXAN [Suspect]
     Active Substance: CYCLOPHOSPHAMIDE
     Indication: OESTROGEN RECEPTOR ASSAY POSITIVE
  34. TAXOTERE [Suspect]
     Active Substance: DOCETAXEL
     Indication: INVASIVE DUCTAL BREAST CARCINOMA
     Dosage: UNK
     Route: 065
     Dates: start: 20100503
  35. ARIMIDEX [Concomitant]
     Active Substance: ANASTROZOLE
     Indication: OESTROGEN RECEPTOR ASSAY POSITIVE
  36. FEMARA [Concomitant]
     Active Substance: LETROZOLE
     Indication: INVASIVE DUCTAL BREAST CARCINOMA
     Dosage: UNK
     Dates: start: 20100901
  37. FEMARA [Concomitant]
     Active Substance: LETROZOLE
     Indication: INVASIVE LOBULAR BREAST CARCINOMA

REACTIONS (5)
  - Pain in extremity [Unknown]
  - Gait disturbance [Unknown]
  - Arthralgia [Unknown]
  - Coccydynia [Unknown]
  - Pelvic pain [Unknown]
